FAERS Safety Report 9592331 (Version 1)
Quarter: 2013Q4

REPORT INFORMATION
  Report Type: Spontaneous
  Country: US (occurrence: None)
  Receive Date: 20131003
  Receipt Date: 20131003
  Transmission Date: 20140711
  Serious: No
  Sender: FDA-Public Use
  Company Number: None

PATIENT
  Age: 35 Year
  Sex: Female
  Weight: 53.52 kg

DRUGS (1)
  1. VIIBRYD [Suspect]
     Indication: PANIC ATTACK
     Dosage: 1 ONCE DAILY TAKEN BY MOUTH
     Route: 048
     Dates: start: 20130719, end: 20130906

REACTIONS (9)
  - Diarrhoea [None]
  - Arthralgia [None]
  - Muscular weakness [None]
  - Insomnia [None]
  - Nausea [None]
  - Tremor [None]
  - Chills [None]
  - Myalgia [None]
  - Gastrointestinal disorder [None]
